FAERS Safety Report 6694613-4 (Version None)
Quarter: 2010Q2

REPORT INFORMATION
  Report Type: 
  Country: None (occurrence: None)
  Receive Date: 20100420
  Receipt Date: 20100405
  Transmission Date: 20101027
  Serious: Yes (Other)
  Sender: FDA-Public Use
  Company Number: B0646550A

PATIENT
  Sex: Female

DRUGS (11)
  1. RETROVIR [Suspect]
     Indication: HIV INFECTION
     Dosage: ORAL
     Route: 048
  2. EPIVIR [Suspect]
     Indication: HIV INFECTION
  3. TRIMETHOPRIM [Concomitant]
  4. SULPHAMETHOXAZOLE [Concomitant]
  5. ISONIAZID [Concomitant]
  6. RIFAMPICIN [Concomitant]
  7. NEVIRAPINE [Suspect]
     Indication: HIV INFECTION
  8. RETROVIR [Suspect]
     Indication: PROPHYLAXIS AGAINST HIV INFECTION
     Dosage: TRANSPLACENTARY
     Route: 064
  9. STREPTOMYCIN [Concomitant]
  10. ETHAMBUTOL HYDROCHLORIDE [Concomitant]
  11. CIPROFLOXACIN [Concomitant]

REACTIONS (18)
  - ALANINE AMINOTRANSFERASE INCREASED [None]
  - ASPARTATE AMINOTRANSFERASE INCREASED [None]
  - BOVINE TUBERCULOSIS [None]
  - CAESAREAN SECTION [None]
  - CHRONIC HEPATITIS [None]
  - DEVELOPMENTAL DELAY [None]
  - DISTURBANCE IN SOCIAL BEHAVIOUR [None]
  - FAILURE TO THRIVE [None]
  - HEPATOSPLENOMEGALY [None]
  - HIV INFECTION [None]
  - LACTIC ACIDOSIS [None]
  - LYMPHADENITIS [None]
  - LYMPHADENOPATHY [None]
  - MATERNAL DRUGS AFFECTING FOETUS [None]
  - MENTAL RETARDATION [None]
  - METABOLIC ACIDOSIS [None]
  - QUADRIPARESIS [None]
  - SMALL FOR DATES BABY [None]
